FAERS Safety Report 5619172-6 (Version None)
Quarter: 2008Q1

REPORT INFORMATION
  Report Type: 
  Country: None (occurrence: None)
  Receive Date: 20080204
  Receipt Date: 20080123
  Transmission Date: 20080703
  Serious: Yes (Death, Disabling)
  Sender: FDA-Public Use
  Company Number: OSCN-PR-0801S-0043

PATIENT
  Sex: Female

DRUGS (6)
  1. OMNISCAN [Suspect]
     Indication: DRUG USE FOR UNKNOWN INDICATION
  2. GADOVERSETAMIDE (OPTIMARK) [Concomitant]
  3. GADOPENTETATE DIMEGLUMINE (MAGNEVIST) [Concomitant]
  4. MULTIHANCE [Concomitant]
  5. PROHANCE [Concomitant]
  6. GADOGENIC ACID (MULTIHANCE) [Concomitant]

REACTIONS (1)
  - NEPHROGENIC SYSTEMIC FIBROSIS [None]
